FAERS Safety Report 6934296-9 (Version None)
Quarter: 2010Q3

REPORT INFORMATION
  Report Type: 
  Country: None (occurrence: None)
  Receive Date: 20100820
  Receipt Date: 20100809
  Transmission Date: 20110219
  Serious: Yes (Hospitalization)
  Sender: FDA-Public Use
  Company Number: A0815113A

PATIENT
  Age: 70 Year
  Sex: Female
  Weight: 58.2 kg

DRUGS (3)
  1. AVANDIA [Suspect]
     Indication: TYPE 2 DIABETES MELLITUS
     Dosage: 5MG PER DAY
     Route: 048
     Dates: start: 20051001, end: 20070201
  2. GLUCOTROL [Concomitant]
  3. TRAMADOL [Concomitant]
     Dosage: 5MG PER DAY

REACTIONS (3)
  - CARDIAC DISORDER [None]
  - CORONARY ARTERY STENOSIS [None]
  - THROMBOSIS [None]
